FAERS Safety Report 6852563-4 (Version None)
Quarter: 2010Q3

REPORT INFORMATION
  Report Type: 
  Country: None (occurrence: None)
  Receive Date: 20100717
  Receipt Date: 20071119
  Transmission Date: 20110219
  Serious: No
  Sender: FDA-Public Use
  Company Number: US-PFIZER INC-2007099170

PATIENT
  Sex: Male
  Weight: 81.6 kg

DRUGS (4)
  1. CHANTIX [Suspect]
     Indication: SMOKING CESSATION THERAPY
     Dates: start: 20071112
  2. LOTREL [Concomitant]
     Indication: HYPERTENSION
  3. COREG [Concomitant]
  4. ZOLOFT [Concomitant]

REACTIONS (2)
  - CONSTIPATION [None]
  - SLEEP DISORDER [None]
